FAERS Safety Report 10044277 (Version 2)
Quarter: 2014Q1

REPORT INFORMATION
  Report Type: Spontaneous
  Country: US (occurrence: US)
  Receive Date: 20140328
  Receipt Date: 20140328
  Transmission Date: 20141002
  Serious: Yes (Other)
  Sender: FDA-Public Use
  Company Number: US-JNJFOC-20120510428

PATIENT
  Sex: Female
  Weight: 98.88 kg

DRUGS (6)
  1. REMICADE [Suspect]
     Indication: RHEUMATOID ARTHRITIS
     Route: 042
     Dates: start: 2002
  2. REMICADE [Suspect]
     Indication: RHEUMATOID ARTHRITIS
     Route: 042
     Dates: start: 2012, end: 2012
  3. METHOTREXATE [Concomitant]
     Indication: ARTHRITIS
     Route: 065
  4. HYDROXYCHLOROQUINE [Concomitant]
     Indication: ARTHRITIS
     Route: 065
  5. NAPROXEN [Concomitant]
     Indication: ARTHRITIS
     Route: 065
  6. FOLIC ACID [Concomitant]
     Route: 065

REACTIONS (3)
  - Rheumatoid arthritis [Unknown]
  - Infection [Recovered/Resolved]
  - Surgery [Unknown]
